FAERS Safety Report 12318274 (Version 2)
Quarter: 2016Q2

REPORT INFORMATION
  Report Type: Report from Study
  Country: DE (occurrence: CL)
  Receive Date: 20160429
  Receipt Date: 20160606
  Transmission Date: 20160815
  Serious: Yes (Hospitalization, Other)
  Sender: FDA-Public Use
  Company Number: DE-ACTELION-A-US2016-135430

PATIENT
  Age: 70 Year
  Sex: Female

DRUGS (7)
  1. SPIRONOLACTONE. [Concomitant]
     Active Substance: SPIRONOLACTONE
     Dosage: 25 MG, UNK
  2. OXYGEN. [Concomitant]
     Active Substance: OXYGEN
     Dosage: 4 L, UNK
  3. SILDENAFIL. [Concomitant]
     Active Substance: SILDENAFIL
     Dosage: 50 MG, Q8HRS
  4. VENTAVIS [Suspect]
     Active Substance: ILOPROST
     Indication: PULMONARY HYPERTENSION
     Dosage: 1 ML, 6/D
     Route: 055
     Dates: start: 20131123
  5. NEO-SINTROM [Concomitant]
     Active Substance: ACENOCOUMAROL
  6. VENTAVIS [Suspect]
     Active Substance: ILOPROST
     Dosage: UNK, 4 TO 5 NEBULIZATION PER DAY
     Route: 055
  7. ATENOLOL. [Concomitant]
     Active Substance: ATENOLOL
     Dosage: 50 MG (HALF PER DAY)

REACTIONS (7)
  - Headache [Unknown]
  - Bronchitis [Recovering/Resolving]
  - Choking sensation [Recovering/Resolving]
  - Pneumonia [Recovering/Resolving]
  - Anxiety [Unknown]
  - Product use issue [Not Recovered/Not Resolved]
  - Disorientation [Unknown]

NARRATIVE: CASE EVENT DATE: 20160414
